FAERS Safety Report 18332540 (Version 1)
Quarter: 2020Q3

REPORT INFORMATION
  Report Type: Spontaneous
  Country: AU (occurrence: AU)
  Receive Date: 20200930
  Receipt Date: 20200930
  Transmission Date: 20201103
  Serious: Yes (Hospitalization, Other)
  Sender: FDA-Public Use
  Company Number: AU-009507513-2009AUS009905

PATIENT
  Age: 83 Year
  Sex: Female

DRUGS (2)
  1. KEYTRUDA [Suspect]
     Active Substance: PEMBROLIZUMAB
     Indication: METASTATIC MALIGNANT MELANOMA
     Dosage: UNK
     Dates: start: 20190123
  2. KEYTRUDA [Suspect]
     Active Substance: PEMBROLIZUMAB
     Dosage: UNK
     Dates: start: 20190213, end: 20190213

REACTIONS (9)
  - Lymphadenopathy mediastinal [Unknown]
  - Nausea [Recovering/Resolving]
  - Osteoporotic fracture [Unknown]
  - Neck pain [Unknown]
  - Diplopia [Unknown]
  - Myasthenic syndrome [Unknown]
  - Vision blurred [Unknown]
  - Headache [Unknown]
  - Weight decreased [Unknown]

NARRATIVE: CASE EVENT DATE: 2019
